FAERS Safety Report 6831167-3 (Version None)
Quarter: 2010Q3

REPORT INFORMATION
  Report Type: 
  Country: None (occurrence: None)
  Receive Date: 20100709
  Receipt Date: 20100709
  Transmission Date: 20110219
  Serious: Yes (Disabling)
  Sender: FDA-Public Use
  Company Number: None

PATIENT
  Age: 7 Month
  Sex: Male
  Weight: 5.3 kg

DRUGS (3)
  1. ERTAPENEM 1GM VIAL MERCK [Suspect]
     Indication: ENTEROBACTER INFECTION
     Dosage: 80MG Q12H IV
     Route: 042
     Dates: start: 20100701, end: 20100706
  2. ERTAPENEM 1GM VIAL MERCK [Suspect]
     Indication: ENTEROBACTER PNEUMONIA
     Dosage: 80MG Q12H IV
     Route: 042
     Dates: start: 20100701, end: 20100706
  3. ERTAPENEM 1GM VIAL MERCK [Suspect]
     Indication: URINARY TRACT INFECTION
     Dosage: 80MG Q12H IV
     Route: 042
     Dates: start: 20100701, end: 20100706

REACTIONS (1)
  - CONVULSION [None]
